FAERS Safety Report 8297232-1 (Version None)
Quarter: 2012Q2

REPORT INFORMATION
  Report Type: 
  Country: None (occurrence: None)
  Receive Date: 20120416
  Receipt Date: 20120402
  Transmission Date: 20120825
  Serious: Yes (Life-Threatening)
  Sender: FDA-Public Use
  Company Number: WAES 1204USA01148

PATIENT
  Age: 68 Year
  Sex: Male

DRUGS (7)
  1. PRINIVIL [Concomitant]
  2. TIGASON [Concomitant]
  3. ZOLINZA [Suspect]
     Indication: MYCOSIS FUNGOIDES
     Dosage: 400 MG/DAILY 300 MG/DAILY 200 MG/DAILY
     Route: 048
     Dates: start: 20120210, end: 20120224
  4. ZOLINZA [Suspect]
     Indication: MYCOSIS FUNGOIDES
     Dosage: 400 MG/DAILY 300 MG/DAILY 200 MG/DAILY
     Route: 048
     Dates: start: 20111122, end: 20111226
  5. ZOLINZA [Suspect]
     Indication: MYCOSIS FUNGOIDES
     Dosage: 400 MG/DAILY 300 MG/DAILY 200 MG/DAILY
     Route: 048
     Dates: start: 20111227, end: 20120209
  6. CONIEL [Concomitant]
  7. TAMSULOSIN HCL [Concomitant]

REACTIONS (2)
  - PLATELET COUNT DECREASED [None]
  - HAEMOLYTIC ANAEMIA [None]
